FAERS Safety Report 21292120 (Version 1)
Quarter: 2022Q3

REPORT INFORMATION
  Report Type: Spontaneous
  Country: DE (occurrence: DE)
  Receive Date: 20220904
  Receipt Date: 20220904
  Transmission Date: 20221026
  Serious: Yes (Other)
  Sender: FDA-Public Use
  Company Number: None

PATIENT
  Age: 78 Year
  Sex: Female
  Weight: 55 kg

DRUGS (1)
  1. IBANDRONATE SODIUM [Suspect]
     Active Substance: IBANDRONATE SODIUM
     Indication: Osteoporosis
     Dosage: 3 MG FUER 3 MONATE, BEHANDLUNG SEIT CA. 1,5 JAHREN, LETZTE GABE: 03.08.2022?3 MG FOR 3 MONTHS, TREAT
     Route: 042
     Dates: end: 20220803

REACTIONS (2)
  - Angina pectoris [Recovered/Resolved]
  - Myocardial infarction [Recovered/Resolved]

NARRATIVE: CASE EVENT DATE: 20220807
